FAERS Safety Report 9476281 (Version 2)
Quarter: 2013Q4

REPORT INFORMATION
  Report Type: Spontaneous
  Country: FR (occurrence: FR)
  Receive Date: 20130826
  Receipt Date: 20131010
  Transmission Date: 20140711
  Serious: Yes (Life-Threatening, Hospitalization, Other)
  Sender: FDA-Public Use
  Company Number: FR-JNJFOC-20130808615

PATIENT
  Age: 47 Year
  Sex: Female
  Weight: 51 kg

DRUGS (1)
  1. DOXORUBICIN HYDROCHLORIDE (CAELYX) [Suspect]
     Indication: BREAST CANCER METASTATIC
     Route: 042
     Dates: start: 20130813, end: 20130813

REACTIONS (4)
  - Shock [Recovered/Resolved]
  - Vertigo [Recovered/Resolved]
  - Hypotension [Recovered/Resolved]
  - Skin discolouration [Recovered/Resolved]
